FAERS Safety Report 8083403-6 (Version None)
Quarter: 2012Q1

REPORT INFORMATION
  Report Type: 
  Country: None (occurrence: None)
  Receive Date: 20120127
  Receipt Date: 20110117
  Transmission Date: 20120608
  Serious: No
  Sender: FDA-Public Use
  Company Number: US-ABBOTT-11P-163-0698014-00

PATIENT
  Age: 51 Year
  Sex: Male

DRUGS (8)
  1. ELAVIL [Concomitant]
     Indication: PRODUCT USED FOR UNKNOWN INDICATION
  2. CLUTRA C [Concomitant]
     Indication: PRODUCT USED FOR UNKNOWN INDICATION
  3. ADVAIR DISKUS 100/50 [Concomitant]
     Indication: PRODUCT USED FOR UNKNOWN INDICATION
  4. PREDNISONE TAB [Concomitant]
     Indication: PRODUCT USED FOR UNKNOWN INDICATION
  5. ALBUTEROL [Concomitant]
     Indication: PRODUCT USED FOR UNKNOWN INDICATION
  6. HUMIRA [Suspect]
     Indication: RHEUMATOID ARTHRITIS
     Dates: start: 20101207
  7. HUMIRA [Suspect]
     Indication: SJOGREN'S SYNDROME
  8. LIPITOR [Concomitant]
     Indication: PRODUCT USED FOR UNKNOWN INDICATION

REACTIONS (8)
  - UPPER RESPIRATORY TRACT INFECTION [None]
  - EXPOSURE TO ALLERGEN [None]
  - UPPER RESPIRATORY TRACT CONGESTION [None]
  - SPUTUM INCREASED [None]
  - ACTIVITIES OF DAILY LIVING IMPAIRED [None]
  - INFECTION [None]
  - COUGH [None]
  - SPUTUM DISCOLOURED [None]
